FAERS Safety Report 25649378 (Version 2)
Quarter: 2025Q4

REPORT INFORMATION
  Report Type: Spontaneous
  Country: EU (occurrence: EU)
  Receive Date: 20250806
  Receipt Date: 20251003
  Transmission Date: 20260117
  Serious: Yes (Life-Threatening, Hospitalization, Other)
  Sender: MYLAN
  Company Number: EU-ORESUND-24OPAJY0918P

PATIENT
  Age: 66 Year
  Sex: Female

DRUGS (16)
  1. METHOTREXATE [Suspect]
     Active Substance: METHOTREXATE
     Indication: Dermatomyositis
     Dosage: 10 MILLIGRAM, QW, 10 MG ONCE A WEEK ORALLY
  2. METHOTREXATE [Suspect]
     Active Substance: METHOTREXATE
     Dosage: 10 MILLIGRAM, QW, 10 MG ONCE A WEEK ORALLY
     Route: 048
  3. METHOTREXATE [Suspect]
     Active Substance: METHOTREXATE
     Dosage: 10 MILLIGRAM, QW, 10 MG ONCE A WEEK ORALLY
     Route: 048
  4. METHOTREXATE [Suspect]
     Active Substance: METHOTREXATE
     Dosage: 10 MILLIGRAM, QW, 10 MG ONCE A WEEK ORALLY
  5. PREDNISOLONE [Suspect]
     Active Substance: PREDNISOLONE
     Indication: Dermatomyositis
     Dosage: 1 MILLIGRAM/KILOGRAM, QD (1 MG/KG/DAY INTRAVENOUSLY FOR 3 DAYS)
  6. PREDNISOLONE [Suspect]
     Active Substance: PREDNISOLONE
     Dosage: 1 MILLIGRAM/KILOGRAM, QD (1 MG/KG/DAY INTRAVENOUSLY FOR 3 DAYS)
     Route: 042
  7. PREDNISOLONE [Suspect]
     Active Substance: PREDNISOLONE
     Dosage: 1 MILLIGRAM/KILOGRAM, QD (1 MG/KG/DAY INTRAVENOUSLY FOR 3 DAYS)
     Route: 042
  8. PREDNISOLONE [Suspect]
     Active Substance: PREDNISOLONE
     Dosage: 1 MILLIGRAM/KILOGRAM, QD (1 MG/KG/DAY INTRAVENOUSLY FOR 3 DAYS)
  9. PREDNISOLONE [Suspect]
     Active Substance: PREDNISOLONE
     Indication: Dermatomyositis
     Dosage: UNK, ORALLY IN A GRADUALLY DECREASING DOSE
  10. PREDNISOLONE [Suspect]
     Active Substance: PREDNISOLONE
     Dosage: UNK, ORALLY IN A GRADUALLY DECREASING DOSE
     Route: 048
  11. PREDNISOLONE [Suspect]
     Active Substance: PREDNISOLONE
     Dosage: UNK, ORALLY IN A GRADUALLY DECREASING DOSE
     Route: 048
  12. PREDNISOLONE [Suspect]
     Active Substance: PREDNISOLONE
     Dosage: UNK, ORALLY IN A GRADUALLY DECREASING DOSE
  13. PEMBROLIZUMAB [Suspect]
     Active Substance: PEMBROLIZUMAB
     Indication: Transitional cell cancer of the renal pelvis and ureter
     Dosage: 200 MILLIGRAM
  14. PEMBROLIZUMAB [Suspect]
     Active Substance: PEMBROLIZUMAB
     Indication: Transitional cell carcinoma recurrent
     Dosage: 200 MILLIGRAM
     Route: 065
  15. PEMBROLIZUMAB [Suspect]
     Active Substance: PEMBROLIZUMAB
     Dosage: 200 MILLIGRAM
     Route: 065
  16. PEMBROLIZUMAB [Suspect]
     Active Substance: PEMBROLIZUMAB
     Dosage: 200 MILLIGRAM

REACTIONS (8)
  - Stevens-Johnson syndrome [Recovered/Resolved]
  - Epidermal necrosis [Recovered/Resolved]
  - Neoplasm malignant [Unknown]
  - Soft tissue mass [Unknown]
  - Feeding disorder [Recovered/Resolved]
  - Pain [Recovered/Resolved]
  - Mucosal ulceration [Recovered/Resolved]
  - Therapy change [Unknown]
